FAERS Safety Report 6845103-7 (Version None)
Quarter: 2010Q3

REPORT INFORMATION
  Report Type: 
  Country: None (occurrence: None)
  Receive Date: 20100715
  Receipt Date: 20070810
  Transmission Date: 20110219
  Serious: No
  Sender: FDA-Public Use
  Company Number: US-PFIZER INC-2007068023

PATIENT
  Sex: Male
  Weight: 72.7 kg

DRUGS (6)
  1. CHANTIX [Suspect]
     Indication: SMOKING CESSATION THERAPY
     Route: 048
     Dates: start: 20070731
  2. VICODIN [Concomitant]
     Indication: INJURY
     Dates: start: 19950101
  3. VYTORIN [Concomitant]
  4. LEXAPRO [Concomitant]
  5. PREVACID [Concomitant]
  6. TERAZOSIN HCL [Concomitant]

REACTIONS (8)
  - DRUG DOSE OMISSION [None]
  - DRUG WITHDRAWAL SYNDROME [None]
  - INSOMNIA [None]
  - MEDICATION ERROR [None]
  - NAUSEA [None]
  - NERVOUSNESS [None]
  - RETCHING [None]
  - TREMOR [None]
